FAERS Safety Report 7774637-6 (Version None)
Quarter: 2011Q3

REPORT INFORMATION
  Report Type: 
  Country: None (occurrence: None)
  Receive Date: 20110923
  Receipt Date: 20110920
  Transmission Date: 20111222
  Serious: Yes (Other)
  Sender: FDA-Public Use
  Company Number: RU-ROCHE-803899

PATIENT
  Sex: Female
  Weight: 50 kg

DRUGS (2)
  1. PEGASYS [Suspect]
     Indication: HEPATITIS C
     Route: 058
     Dates: start: 20101001, end: 20110701
  2. REBETOL [Concomitant]
     Indication: HEPATITIS C
     Route: 048
     Dates: start: 20101001, end: 20110701

REACTIONS (4)
  - MYALGIA [None]
  - AGRANULOCYTOSIS [None]
  - BONE PAIN [None]
  - NEUROPATHY PERIPHERAL [None]
